FAERS Safety Report 18729107 (Version 1)
Quarter: 2021Q1

REPORT INFORMATION
  Report Type: Report from Study
  Country: CA (occurrence: CA)
  Receive Date: 20210112
  Receipt Date: 20210112
  Transmission Date: 20210419
  Serious: Yes (Other)
  Sender: FDA-Public Use
  Company Number: CA-GLAXOSMITHKLINE-CA2021AMR001956

PATIENT
  Age: 52 Year
  Sex: Female

DRUGS (4)
  1. PREDNISONE. [Suspect]
     Active Substance: PREDNISONE
     Indication: PRODUCT USED FOR UNKNOWN INDICATION
     Dosage: UNK UNK, QD
  2. PREDNISONE. [Suspect]
     Active Substance: PREDNISONE
     Dosage: 5 MG, Z (EVERY 2 DAYS)
  3. TYLENOL [Suspect]
     Active Substance: ACETAMINOPHEN
     Indication: PRODUCT USED FOR UNKNOWN INDICATION
     Dosage: UNK (AS NEEDED MAX 4G / DAY)
  4. MEPOLIZUMAB [Suspect]
     Active Substance: MEPOLIZUMAB
     Indication: EOSINOPHILIC GRANULOMATOSIS WITH POLYANGIITIS
     Dosage: 300 MG, Z (MONTHLY)
     Route: 042
     Dates: start: 20200720

REACTIONS (20)
  - Arthralgia [Unknown]
  - Lymphocytic infiltration [Unknown]
  - Hypersensitivity vasculitis [Unknown]
  - Neuropathy peripheral [Unknown]
  - Granuloma skin [Unknown]
  - Dermatitis [Unknown]
  - Mononeuropathy multiplex [Unknown]
  - Fatigue [Unknown]
  - Sinusitis [Recovered/Resolved]
  - Eosinophilic granulomatosis with polyangiitis [Recovered/Resolved]
  - Eczema [Unknown]
  - Pain [Unknown]
  - Rash [Unknown]
  - Joint swelling [Unknown]
  - Tendonitis [Unknown]
  - Myositis [Unknown]
  - Eosinophilia [Unknown]
  - Intestinal ischaemia [Unknown]
  - Joint effusion [Unknown]
  - Psoriasis [Unknown]

NARRATIVE: CASE EVENT DATE: 201909
